FAERS Safety Report 10400199 (Version 2)
Quarter: 2014Q3

REPORT INFORMATION
  Report Type: Spontaneous
  Country: US (occurrence: US)
  Receive Date: 20140821
  Receipt Date: 20140917
  Transmission Date: 20150326
  Serious: No
  Sender: FDA-Public Use
  Company Number: US-009507513-1408USA012212

PATIENT
  Sex: Female
  Weight: 77.98 kg

DRUGS (3)
  1. OXYTROL FOR WOMEN [Suspect]
     Active Substance: OXYBUTYNIN
     Indication: URINARY INCONTINENCE
     Dosage: 1 DF, Q4D
     Route: 062
     Dates: start: 201407, end: 201408
  2. BIOSYNTRX BIOTEARS [Concomitant]
     Indication: DRY EYE
     Dosage: UNK, BID
  3. OXYTROL FOR WOMEN [Suspect]
     Active Substance: OXYBUTYNIN
     Indication: POLLAKIURIA

REACTIONS (1)
  - Drug ineffective [Unknown]
